FAERS Safety Report 6121233-2 (Version None)
Quarter: 2009Q1

REPORT INFORMATION
  Report Type: 
  Country: None (occurrence: None)
  Receive Date: 20090312
  Receipt Date: 20090312
  Transmission Date: 20090719
  Serious: Yes (Other)
  Sender: FDA-Public Use
  Company Number: None

PATIENT
  Age: 89 Year
  Sex: Male
  Weight: 72.5755 kg

DRUGS (1)
  1. LYRICA [Suspect]
     Indication: SCIATICA
     Dosage: 1 PILL 3 TIMES A DAY PO
     Route: 048
     Dates: start: 20061129, end: 20080502

REACTIONS (7)
  - AGGRESSION [None]
  - ANGER [None]
  - COMMUNICATION DISORDER [None]
  - CONFUSIONAL STATE [None]
  - DELIRIUM [None]
  - HOSTILITY [None]
  - PERSONALITY CHANGE [None]
